FAERS Safety Report 10284730 (Version 1)
Quarter: 2014Q3

REPORT INFORMATION
  Report Type: Spontaneous
  Country: US (occurrence: US)
  Receive Date: 20140708
  Receipt Date: 20140708
  Transmission Date: 20150326
  Serious: Yes (Other)
  Sender: FDA-Public Use
  Company Number: US-ELI_LILLY_AND_COMPANY-US201406009766

PATIENT
  Sex: Female

DRUGS (1)
  1. ZYPREXA [Suspect]
     Active Substance: OLANZAPINE
     Indication: ANXIETY
     Dosage: 10 MG, EACH EVENING
     Route: 065
     Dates: start: 2010

REACTIONS (3)
  - Psychotic disorder [Unknown]
  - Off label use [Not Recovered/Not Resolved]
  - Insomnia [Unknown]
